FAERS Safety Report 11138728 (Version 1)
Quarter: 2015Q2

REPORT INFORMATION
  Report Type: Spontaneous
  Country: TR (occurrence: TR)
  Receive Date: 20150525
  Receipt Date: 20150525
  Transmission Date: 20150821
  Serious: Yes (Hospitalization)
  Sender: FDA-Public Use
  Company Number: TR-BAUSCH-BL-2015-013625

PATIENT
  Age: 10 Year
  Sex: Male

DRUGS (1)
  1. CYCLOPENTOLATE [Suspect]
     Active Substance: CYCLOPENTOLATE
     Indication: DIPLOPIA
     Route: 047

REACTIONS (4)
  - Pupils unequal [Unknown]
  - Pupillary reflex impaired [Unknown]
  - Nausea [Unknown]
  - Syncope [Unknown]
